FAERS Safety Report 10078291 (Version 3)
Quarter: 2014Q2

REPORT INFORMATION
  Report Type: Spontaneous
  Country: IT (occurrence: IT)
  Receive Date: 20140415
  Receipt Date: 20140522
  Transmission Date: 20141212
  Serious: Yes (Hospitalization)
  Sender: FDA-Public Use
  Company Number: IT-RANBAXY-2014RR-80088

PATIENT
  Age: 20 Year
  Sex: Male

DRUGS (5)
  1. DELORAZEPAM [Suspect]
     Indication: INTENTIONAL OVERDOSE
     Dosage: 300 MG COMPLETE
     Route: 048
     Dates: start: 20140321, end: 20140321
  2. LORAZEPAM [Suspect]
     Indication: INTENTIONAL OVERDOSE
     Dosage: 25 MG COMPLETE
     Route: 048
     Dates: start: 20140321, end: 20140321
  3. ZOLOFT [Suspect]
     Indication: INTENTIONAL OVERDOSE
     Dosage: 12 DF COMPLETE
     Route: 048
     Dates: start: 20140321, end: 20140321
  4. DEPAKIN CHRONO [Suspect]
     Indication: INTENTIONAL OVERDOSE
     Dosage: 8 DF COMPLETE
     Route: 048
     Dates: start: 20140321, end: 20140321
  5. DEPAKIN CHRONO [Suspect]
     Indication: INTENTIONAL OVERDOSE
     Dosage: 12 DF COMPLETE
     Route: 048
     Dates: start: 20140321, end: 20140321

REACTIONS (5)
  - Coma [Recovered/Resolved]
  - Mydriasis [Recovered/Resolved]
  - Suicide attempt [Recovered/Resolved]
  - Intentional overdose [Recovered/Resolved]
  - Rhabdomyolysis [Recovered/Resolved]
